FAERS Safety Report 6212244-7 (Version None)
Quarter: 2009Q2

REPORT INFORMATION
  Report Type: 
  Country: None (occurrence: None)
  Receive Date: 20090529
  Receipt Date: 20090520
  Transmission Date: 20091009
  Serious: Yes (Hospitalization)
  Sender: FDA-Public Use
  Company Number: 2009AL003452

PATIENT
  Age: 22 Year
  Sex: Female

DRUGS (1)
  1. SULFATRIM PEDIATRIC [Suspect]
     Indication: URINARY TRACT INFECTION

REACTIONS (1)
  - ACUTE HEPATIC FAILURE [None]
